FAERS Safety Report 9635859 (Version 1)
Quarter: 2013Q4

REPORT INFORMATION
  Report Type: Spontaneous
  Country: ES (occurrence: ES)
  Receive Date: 20131021
  Receipt Date: 20131021
  Transmission Date: 20140711
  Serious: Yes (Other)
  Sender: FDA-Public Use
  Company Number: ES-PFIZER INC-2013297183

PATIENT
  Age: 33 Year
  Sex: Female

DRUGS (2)
  1. PROGEVERA [Suspect]
     Indication: AMENORRHOEA
     Dosage: UNK
     Route: 048
     Dates: start: 20121022, end: 20121023
  2. KEPPRA [Concomitant]

REACTIONS (1)
  - Epilepsy [Recovered/Resolved]
